FAERS Safety Report 8906356 (Version 1)
Quarter: 2012Q4

REPORT INFORMATION
  Report Type: Spontaneous
  Country: US (occurrence: None)
  Receive Date: 20121108
  Receipt Date: 20121108
  Transmission Date: 20130627
  Serious: Yes (Hospitalization, Other)
  Sender: FDA-Public Use
  Company Number: AXC-2012-000520

PATIENT
  Age: 48 Year
  Sex: Female

DRUGS (1)
  1. MESALAMINE [Suspect]
     Indication: CROHN^S COLITIS

REACTIONS (3)
  - Colitis [None]
  - Condition aggravated [None]
  - Polymyositis [None]
